FAERS Safety Report 9641567 (Version 4)
Quarter: 2013Q4

REPORT INFORMATION
  Report Type: Spontaneous
  Country: CA (occurrence: CA)
  Receive Date: 20131023
  Receipt Date: 20131203
  Transmission Date: 20140711
  Serious: Yes (Life-Threatening, Hospitalization, Disabling, Congenital Anomaly)
  Sender: FDA-Public Use
  Company Number: CA-ROCHE-1291447

PATIENT
  Age: 1 Year
  Sex: Female
  Weight: 9 kg

DRUGS (5)
  1. TOCILIZUMAB [Suspect]
     Indication: JUVENILE IDIOPATHIC ARTHRITIS
     Route: 065
     Dates: start: 201309, end: 201310
  2. TOCILIZUMAB [Suspect]
     Route: 042
     Dates: start: 20131002
  3. PREDNISOLONE [Suspect]
     Indication: JUVENILE IDIOPATHIC ARTHRITIS
     Route: 048
     Dates: start: 201305
  4. CYCLOSPORINE [Suspect]
     Indication: JUVENILE IDIOPATHIC ARTHRITIS
     Route: 048
     Dates: start: 201306, end: 20131022
  5. OMEPRAZOLE [Concomitant]
     Route: 048

REACTIONS (5)
  - Volvulus [Recovering/Resolving]
  - Hypertension [Recovered/Resolved]
  - Pneumatosis intestinalis [Unknown]
  - Oxygen saturation decreased [Recovered/Resolved]
  - Pigmentation disorder [Recovered/Resolved]
